FAERS Safety Report 17578264 (Version 2)
Quarter: 2020Q1

REPORT INFORMATION
  Report Type: Spontaneous
  Country: MY (occurrence: MY)
  Receive Date: 20200324
  Receipt Date: 20200327
  Transmission Date: 20200409
  Serious: Yes (Hospitalization, Other)
  Sender: FDA-Public Use
  Company Number: MY-MYLANLABS-2020M1031757

PATIENT
  Age: 50 Year
  Sex: Male

DRUGS (6)
  1. CLOZAPINE. [Suspect]
     Active Substance: CLOZAPINE
     Dosage: UNK MILLIGRAM, QD
     Route: 048
  2. CLOZAPINE. [Suspect]
     Active Substance: CLOZAPINE
     Indication: ACUTE PSYCHOSIS
     Dosage: 25 MILLIGRAM, QD
     Route: 048
  3. CLOZAPINE. [Suspect]
     Active Substance: CLOZAPINE
     Dosage: 25 MILLIGRAM, QD
     Route: 048
  4. CLOZAPINE. [Suspect]
     Active Substance: CLOZAPINE
     Dosage: 100 MILLIGRAM, QD
  5. CLOZAPINE. [Suspect]
     Active Substance: CLOZAPINE
     Indication: TARDIVE DYSKINESIA
     Dosage: 100 MILLIGRAM, QD
     Route: 048
  6. SODIUM VALPROATE [Suspect]
     Active Substance: VALPROATE SODIUM
     Indication: ACUTE PSYCHOSIS
     Dosage: 500 MILLIGRAM, BID
     Route: 065

REACTIONS (3)
  - Myocarditis [Recovered/Resolved]
  - Tachycardia [Unknown]
  - Pericarditis [Recovered/Resolved]
